FAERS Safety Report 21504647 (Version 1)
Quarter: 2022Q4

REPORT INFORMATION
  Report Type: Spontaneous
  Country: RU (occurrence: None)
  Receive Date: 20221025
  Receipt Date: 20221025
  Transmission Date: 20230113
  Serious: Yes (Other)
  Sender: FDA-Public Use
  Company Number: RU-ROCHE-3203581

PATIENT
  Age: 63 Year
  Sex: Female

DRUGS (12)
  1. TRASTUZUMAB [Suspect]
     Active Substance: TRASTUZUMAB
     Indication: Invasive breast carcinoma
     Dosage: 6 MG/KG
     Route: 065
     Dates: start: 20181016, end: 20190201
  2. TRASTUZUMAB [Suspect]
     Active Substance: TRASTUZUMAB
     Route: 065
     Dates: start: 201908
  3. TRASTUZUMAB [Suspect]
     Active Substance: TRASTUZUMAB
     Dosage: 7 ADMINISTRATIONS
     Route: 065
     Dates: end: 20200327
  4. ADO-TRASTUZUMAB EMTANSINE [Suspect]
     Active Substance: ADO-TRASTUZUMAB EMTANSINE
     Indication: Invasive breast carcinoma
     Dosage: 10 ADMINISTRATIONS OF TRASTUZUMAB EMTANSINE 3.6 MG/KG (259 MG) WERE PERFORMED, LAST ADMINISTRATION O
     Route: 041
     Dates: start: 20200623, end: 20210115
  5. ADO-TRASTUZUMAB EMTANSINE [Suspect]
     Active Substance: ADO-TRASTUZUMAB EMTANSINE
     Route: 065
  6. PERTUZUMAB [Suspect]
     Active Substance: PERTUZUMAB
     Indication: Invasive breast carcinoma
     Route: 065
     Dates: start: 201908
  7. PERTUZUMAB [Suspect]
     Active Substance: PERTUZUMAB
     Dosage: 7 ADMINISTRATIONS
     Route: 065
     Dates: end: 20200327
  8. LETROZOLE [Suspect]
     Active Substance: LETROZOLE
     Indication: Invasive breast carcinoma
     Dosage: 10 ADMINISTRATIONS OF LETROZOLE 2.5 MG WERE PERFORMED, LAST ADMINISTRATION ON 15/JAN/2021
     Route: 065
     Dates: start: 20200623, end: 20210115
  9. FULVESTRANT [Suspect]
     Active Substance: FULVESTRANT
     Indication: Invasive breast carcinoma
     Dosage: 2 ADMINISTRATIONS
     Route: 065
     Dates: start: 20200319
  10. VINORELBINE [Suspect]
     Active Substance: VINORELBINE TARTRATE
     Indication: Invasive breast carcinoma
     Route: 065
     Dates: start: 201908
  11. DOCETAXEL [Suspect]
     Active Substance: DOCETAXEL
     Indication: Invasive breast carcinoma
     Route: 065
     Dates: start: 20181016, end: 20190201
  12. CARBOPLATIN [Suspect]
     Active Substance: CARBOPLATIN
     Indication: Invasive breast carcinoma
     Dosage: AUC6
     Route: 065
     Dates: start: 20181016, end: 20190201

REACTIONS (4)
  - Disease progression [Unknown]
  - Dizziness postural [Unknown]
  - Asthenia [Unknown]
  - Epistaxis [Unknown]

NARRATIVE: CASE EVENT DATE: 20210802
